FAERS Safety Report 4356280-4 (Version None)
Quarter: 2004Q2

REPORT INFORMATION
  Report Type: 
  Country: None (occurrence: None)
  Receive Date: 20040510
  Receipt Date: 20040510
  Transmission Date: 20050107
  Serious: Yes (Hospitalization, Disabling)
  Sender: FDA-Public Use
  Company Number: None

PATIENT
  Age: 84 Year
  Sex: Male
  Weight: 92.0802 kg

DRUGS (1)
  1. GLEEVEC [Suspect]

REACTIONS (3)
  - HYPOAESTHESIA [None]
  - OEDEMA [None]
  - SUBDURAL HAEMATOMA [None]
